FAERS Safety Report 9245088 (Version 1)
Quarter: 2013Q2

REPORT INFORMATION
  Report Type: Spontaneous
  Country: BR (occurrence: BR)
  Receive Date: 20130422
  Receipt Date: 20130422
  Transmission Date: 20140414
  Serious: Yes (Hospitalization, Other)
  Sender: FDA-Public Use
  Company Number: BR-PFIZER INC-2013121833

PATIENT
  Age: 65 Year
  Sex: Female

DRUGS (1)
  1. LYRICA [Suspect]
     Indication: PAIN
     Dosage: 75 MG, 1X/DAY
     Dates: start: 2009

REACTIONS (5)
  - Inflammation [Unknown]
  - Bone fissure [Unknown]
  - Bone fissure [Recovering/Resolving]
  - Fall [Unknown]
  - Drug ineffective [Unknown]
